FAERS Safety Report 21212709 (Version 1)
Quarter: 2022Q3

REPORT INFORMATION
  Report Type: Spontaneous
  Country: US (occurrence: None)
  Receive Date: 20220813
  Receipt Date: 20220813
  Transmission Date: 20221026
  Serious: Yes (Disabling)
  Sender: FDA-Public Use
  Company Number: None

PATIENT
  Age: 20 Year
  Sex: Female
  Weight: 58.06 kg

DRUGS (4)
  1. NEXPLANON [Suspect]
     Active Substance: ETONOGESTREL
  2. MAGNESIUM [Concomitant]
     Active Substance: MAGNESIUM
  3. CALCIUM LACTATE [Concomitant]
     Active Substance: CALCIUM LACTATE
  4. CURCUMIN [Concomitant]
     Active Substance: CURCUMIN

REACTIONS (6)
  - Adnexa uteri pain [None]
  - Ovarian cyst [None]
  - Hormone level abnormal [None]
  - Fatigue [None]
  - Asthenia [None]
  - Acne [None]

NARRATIVE: CASE EVENT DATE: 20220108
